FAERS Safety Report 5726523-0 (Version None)
Quarter: 2008Q2

REPORT INFORMATION
  Report Type: 
  Country: None (occurrence: None)
  Receive Date: 20080502
  Receipt Date: 20080425
  Transmission Date: 20081010
  Serious: Yes (Death, Life-Threatening, Other)
  Sender: FDA-Public Use
  Company Number: JP-MERCK-0803USA04459

PATIENT
  Age: 91 Year
  Sex: Male
  Weight: 36 kg

DRUGS (11)
  1. STROMECTOL [Suspect]
     Indication: ACARODERMATITIS
     Route: 048
     Dates: start: 20080303, end: 20080303
  2. STROMECTOL [Suspect]
     Route: 048
     Dates: start: 20080317, end: 20080317
  3. STROMECTOL [Suspect]
     Route: 048
     Dates: start: 20080310, end: 20080310
  4. STROMECTOL [Suspect]
     Route: 048
     Dates: start: 20080324, end: 20080324
  5. MEROPEN [Concomitant]
     Indication: PNEUMONIA
     Route: 042
     Dates: start: 20080228, end: 20080319
  6. BISOLVON [Concomitant]
     Indication: SPUTUM RETENTION
     Route: 042
     Dates: start: 20080218, end: 20080324
  7. GAMMA BENZENE HEXACHLORIDE [Suspect]
     Indication: ACARODERMATITIS
     Route: 061
     Dates: start: 20080304, end: 20080311
  8. EURAX [Concomitant]
     Route: 061
     Dates: start: 20080303, end: 20080324
  9. FULCALIQ [Concomitant]
     Indication: PARENTERAL NUTRITION
     Route: 042
     Dates: start: 20080322, end: 20080324
  10. CEFOTAX [Concomitant]
     Indication: PNEUMONIA
     Route: 042
     Dates: start: 20080130, end: 20080219
  11. MODACIN [Concomitant]
     Indication: PNEUMONIA
     Route: 042
     Dates: start: 20080225, end: 20080227

REACTIONS (4)
  - BODY TEMPERATURE DECREASED [None]
  - CARDIAC ARREST [None]
  - LIVER DISORDER [None]
  - RESPIRATORY ARREST [None]
